FAERS Safety Report 9659755 (Version 3)
Quarter: 2013Q4

REPORT INFORMATION
  Report Type: Spontaneous
  Country: US (occurrence: US)
  Receive Date: 20131031
  Receipt Date: 20131226
  Transmission Date: 20140711
  Serious: No
  Sender: FDA-Public Use
  Company Number: US-PFIZER INC-2013307597

PATIENT
  Age: 64 Year
  Sex: Female
  Weight: 81.63 kg

DRUGS (6)
  1. NEURONTIN [Suspect]
     Indication: NEUROPATHY PERIPHERAL
     Dosage: 900 MG, 3X/DAY
  2. LIPITOR [Suspect]
     Indication: FLUID RETENTION
     Dosage: 20 MG, DAILY
  3. NORCO [Suspect]
     Indication: PAIN
     Dosage: UNK
  4. METFORMIN [Concomitant]
     Indication: DIABETES MELLITUS
     Dosage: UNK
  5. BABY ASPIRIN [Concomitant]
     Dosage: UNK
  6. JANUVIA [Concomitant]
     Dosage: UNK

REACTIONS (3)
  - Off label use [Unknown]
  - Oropharyngeal pain [Unknown]
  - Pain [Unknown]
